FAERS Safety Report 7004977-X (Version None)
Quarter: 2010Q3

REPORT INFORMATION
  Report Type: 
  Country: None (occurrence: None)
  Receive Date: 20100921
  Receipt Date: 20100913
  Transmission Date: 20110219
  Serious: Yes (Hospitalization)
  Sender: FDA-Public Use
  Company Number: IE-AMGEN-QUU437938

PATIENT
  Sex: Female

DRUGS (9)
  1. ARANESP [Suspect]
     Indication: RENAL FAILURE CHRONIC
     Route: 058
     Dates: start: 20090609
  2. CARDURA [Concomitant]
  3. GLIPIZIDE [Concomitant]
  4. NU-SEALS ASPIRIN [Concomitant]
  5. TRIMETHOPRIM [Concomitant]
  6. LIPITOR [Concomitant]
  7. MIRTAZAPINE [Concomitant]
  8. LANSOPRAZOLE [Concomitant]
  9. AMLODIPINE [Concomitant]

REACTIONS (1)
  - GOUT [None]
